FAERS Safety Report 8616343-1 (Version None)
Quarter: 2012Q3

REPORT INFORMATION
  Report Type: 
  Country: None (occurrence: None)
  Receive Date: 20120823
  Receipt Date: 20120816
  Transmission Date: 20120928
  Serious: Yes (Hospitalization)
  Sender: FDA-Public Use
  Company Number: DE-009507513-1208DEU007592

PATIENT

DRUGS (1)
  1. ALENDRONATE SODIUM/CHOLECALCIFEROL [Suspect]
     Indication: OSTEOPOROSIS POSTMENOPAUSAL
     Dosage: 700MG/5600IU, QW
     Route: 048
     Dates: start: 20110801

REACTIONS (1)
  - SPINAL FRACTURE [None]
